FAERS Safety Report 8558474-0 (Version None)
Quarter: 2012Q3

REPORT INFORMATION
  Report Type: 
  Country: None (occurrence: None)
  Receive Date: 20120801
  Receipt Date: 20120723
  Transmission Date: 20120928
  Serious: No
  Sender: FDA-Public Use
  Company Number: US-ASTRAZENECA-2012SE06159

PATIENT
  Age: 61 Year
  Sex: Female
  Weight: 54.4 kg

DRUGS (2)
  1. SEROQUEL XR [Suspect]
     Indication: INSOMNIA
     Route: 048
  2. ASPIRIN [Concomitant]

REACTIONS (5)
  - INSOMNIA [None]
  - PNEUMONIA PRIMARY ATYPICAL [None]
  - DRUG DOSE OMISSION [None]
  - POOR QUALITY SLEEP [None]
  - OFF LABEL USE [None]
